FAERS Safety Report 23402727 (Version 2)
Quarter: 2024Q1

REPORT INFORMATION
  Report Type: Spontaneous
  Country: US (occurrence: US)
  Receive Date: 20240115
  Receipt Date: 20240212
  Transmission Date: 20240410
  Serious: Yes (Other)
  Sender: FDA-Public Use
  Company Number: US-PFIZER INC-PV202400004544

PATIENT
  Age: 12 Year
  Sex: Female

DRUGS (1)
  1. XELJANZ XR [Suspect]
     Active Substance: TOFACITINIB CITRATE
     Indication: Juvenile idiopathic arthritis
     Dosage: 11 MG

REACTIONS (4)
  - Uveitis [Recovering/Resolving]
  - Skin disorder [Recovering/Resolving]
  - Product dose omission issue [Unknown]
  - Off label use [Unknown]
